FAERS Safety Report 7075110-3 (Version None)
Quarter: 2010Q4

REPORT INFORMATION
  Report Type: 
  Country: None (occurrence: None)
  Receive Date: 20101029
  Receipt Date: 20100702
  Transmission Date: 20110411
  Serious: No
  Sender: FDA-Public Use
  Company Number: US-WYE-H14239310

PATIENT
  Age: 38 Year
  Sex: Female
  Weight: 90.8 kg

DRUGS (3)
  1. ADVIL PM [Suspect]
     Indication: INSOMNIA
     Dosage: 2 CAPSULES, ONCE
     Dates: start: 20100317, end: 20100317
  2. ADVIL PM [Suspect]
     Indication: PAIN
  3. LORTAB [Concomitant]

REACTIONS (1)
  - DRUG INEFFECTIVE [None]
